FAERS Safety Report 5387693-X (Version None)
Quarter: 2007Q3

REPORT INFORMATION
  Report Type: 
  Country: None (occurrence: None)
  Receive Date: 20070716
  Receipt Date: 20070705
  Transmission Date: 20080115
  Serious: Yes (Life-Threatening, Hospitalization)
  Sender: FDA-Public Use
  Company Number: JP-JNJFOC-20070203302

PATIENT
  Sex: Male
  Weight: 54 kg

DRUGS (16)
  1. FENTANYL TRANSDERMAL SYSTEM [Suspect]
     Route: 062
  2. FENTANYL TRANSDERMAL SYSTEM [Suspect]
     Dosage: 50 UG/HR PLUS 25 UG/HR PATCHES
     Route: 062
  3. FENTANYL TRANSDERMAL SYSTEM [Suspect]
     Route: 062
  4. FENTANYL TRANSDERMAL SYSTEM [Suspect]
     Indication: CANCER PAIN
     Route: 062
  5. FENTANYL TRANSDERMAL SYSTEM [Suspect]
     Indication: PAIN MANAGEMENT
     Route: 062
  6. RIFAMPICIN [Interacting]
     Indication: PULMONARY TUBERCULOSIS
     Dosage: 3X 150 MG
     Route: 048
  7. ISCOTIN [Suspect]
     Indication: PULMONARY TUBERCULOSIS
     Dosage: 3X 100MG
     Route: 048
  8. ESANBUTOL [Concomitant]
     Indication: PULMONARY TUBERCULOSIS
     Dosage: 3X 250MG
     Route: 048
  9. ISONIAZID [Concomitant]
     Indication: PULMONARY TUBERCULOSIS
     Route: 048
  10. LOXOPROFEN SODIUM [Concomitant]
     Indication: CANCER PAIN
     Route: 048
  11. LOXOPROFEN SODIUM [Concomitant]
     Indication: PAIN MANAGEMENT
     Dosage: 3X 60MG
     Route: 048
  12. PYDOXAL [Concomitant]
     Indication: PULMONARY TUBERCULOSIS
     Dosage: 3X 10MG
     Route: 048
  13. MUCOSTA [Concomitant]
     Indication: ABDOMINAL PAIN UPPER
     Route: 048
  14. MUCOSTA [Concomitant]
     Dosage: 3X 100MG
     Route: 048
  15. HALCION [Concomitant]
     Indication: INSOMNIA
     Route: 048
  16. HALCION [Concomitant]
     Route: 048

REACTIONS (4)
  - ALTERED STATE OF CONSCIOUSNESS [None]
  - BLOOD CREATININE INCREASED [None]
  - DRUG INTERACTION [None]
  - INADEQUATE ANALGESIA [None]
